FAERS Safety Report 16915817 (Version 1)
Quarter: 2019Q4

REPORT INFORMATION
  Report Type: Spontaneous
  Country: PL (occurrence: PL)
  Receive Date: 20191014
  Receipt Date: 20191014
  Transmission Date: 20200122
  Serious: Yes (Other)
  Sender: FDA-Public Use
  Company Number: PL-JNJFOC-20191004861

PATIENT
  Age: 44 Year
  Sex: Male

DRUGS (4)
  1. DOXORUBICIN HYDROCHLORIDE. [Suspect]
     Active Substance: DOXORUBICIN HYDROCHLORIDE
     Route: 065
     Dates: start: 20110906, end: 201112
  2. METHOTREXATE. [Suspect]
     Active Substance: METHOTREXATE
     Route: 065
     Dates: start: 20110906, end: 201112
  3. DOXORUBICIN HYDROCHLORIDE. [Suspect]
     Active Substance: DOXORUBICIN HYDROCHLORIDE
     Indication: ALVEOLAR SOFT PART SARCOMA
     Route: 065
     Dates: start: 20110830
  4. METHOTREXATE. [Suspect]
     Active Substance: METHOTREXATE
     Indication: ALVEOLAR SOFT PART SARCOMA
     Route: 065
     Dates: start: 20110830

REACTIONS (4)
  - Malignant neoplasm progression [Unknown]
  - Off label use [Unknown]
  - Product use in unapproved indication [Unknown]
  - Alveolar soft part sarcoma [Unknown]

NARRATIVE: CASE EVENT DATE: 20110830
